FAERS Safety Report 8326390-5 (Version None)
Quarter: 2012Q2

REPORT INFORMATION
  Report Type: 
  Country: None (occurrence: None)
  Receive Date: 20120501
  Receipt Date: 20090925
  Transmission Date: 20120825
  Serious: No
  Sender: FDA-Public Use
  Company Number: US-TEVA-2009008127

PATIENT
  Sex: Female
  Weight: 61.29 kg

DRUGS (8)
  1. OXYCONTIN [Concomitant]
     Indication: PAIN
     Dates: start: 20050101
  2. LISINOPRIL AND HYDROCHLOROTHIAZIDE [Concomitant]
     Dates: start: 20060101
  3. METHYLPHENIDATE [Concomitant]
     Dates: start: 20080101
  4. AMANTADINE HCL [Concomitant]
     Dates: start: 20050101
  5. NUVIGIL [Suspect]
     Indication: SLEEP DISORDER
     Dosage: 150 MILLIGRAM;
     Route: 048
     Dates: start: 20090601, end: 20090601
  6. NEURONTIN [Concomitant]
     Dates: start: 20040101
  7. PERCOCET [Concomitant]
     Indication: PAIN
     Dates: start: 20081201
  8. ZOLOFT [Concomitant]
     Dates: start: 20050101

REACTIONS (1)
  - SOMNOLENCE [None]
